FAERS Safety Report 5140262-9 (Version None)
Quarter: 2006Q4

REPORT INFORMATION
  Report Type: 
  Country: None (occurrence: None)
  Receive Date: 20061026
  Receipt Date: 20061026
  Transmission Date: 20070319
  Serious: Yes (Hospitalization, Other)
  Sender: FDA-Public Use
  Company Number: None

PATIENT
  Sex: Female
  Weight: 74.8435 kg

DRUGS (1)
  1. ZYPREXA [Suspect]
     Indication: BIPOLAR DISORDER
     Dosage: MAXIMUM PO
     Route: 048
     Dates: end: 20030911

REACTIONS (16)
  - BLOOD GLUCOSE INCREASED [None]
  - CONSTIPATION [None]
  - DEPRESSION [None]
  - DIZZINESS [None]
  - DYSMENORRHOEA [None]
  - HYPERTENSION [None]
  - INCONTINENCE [None]
  - MENOMETRORRHAGIA [None]
  - MICTURITION URGENCY [None]
  - OBESITY [None]
  - PELVIC PAIN [None]
  - PREMENSTRUAL SYNDROME [None]
  - THIRST [None]
  - UNWANTED AWARENESS DURING ANAESTHESIA [None]
  - UTERINE LEIOMYOMA [None]
  - VAGINAL HAEMORRHAGE [None]
